FAERS Safety Report 5407009-X (Version None)
Quarter: 2007Q3

REPORT INFORMATION
  Report Type: 
  Country: None (occurrence: None)
  Receive Date: 20070801
  Receipt Date: 20070717
  Transmission Date: 20080115
  Serious: Yes (Hospitalization, Other)
  Sender: FDA-Public Use
  Company Number: 159023ISR

PATIENT
  Age: 64 Year
  Sex: Female

DRUGS (2)
  1. ONDANSETRON [Suspect]
     Dosage: 16 MG (8 MG, 2 IN 1 D), ORAL, 8 MG (8 MG, 1 IN 1 D), ORAL
     Route: 048
     Dates: start: 20070531, end: 20070531
  2. ONDANSETRON [Suspect]
     Dosage: 16 MG (8 MG, 2 IN 1 D), ORAL, 8 MG (8 MG, 1 IN 1 D), ORAL
     Route: 048
     Dates: start: 20070601, end: 20070604

REACTIONS (1)
  - TORSADE DE POINTES [None]
